FAERS Safety Report 19953590 (Version 1)
Quarter: 2021Q4

REPORT INFORMATION
  Report Type: Spontaneous
  Country: US (occurrence: US)
  Receive Date: 20211011
  Receipt Date: 20211011
  Transmission Date: 20220303
  Serious: Yes (Death)
  Sender: FDA-Public Use
  Company Number: None

PATIENT
  Sex: Male

DRUGS (7)
  1. ESBRIET [Suspect]
     Active Substance: PIRFENIDONE
     Indication: Idiopathic pulmonary fibrosis
     Route: 048
     Dates: start: 20200114
  2. AMLODIPINE TAB [Concomitant]
  3. LEVOTHYROXIN TAB [Concomitant]
  4. PANTOPRAZOLE TAB [Concomitant]
  5. PRAVASTATIN [Concomitant]
     Active Substance: PRAVASTATIN
  6. PREDNISONE [Concomitant]
     Active Substance: PREDNISONE
  7. VITAMIN D CAP [Concomitant]

REACTIONS (1)
  - Death [None]
